FAERS Safety Report 6417897-6 (Version None)
Quarter: 2009Q4

REPORT INFORMATION
  Report Type: 
  Country: None (occurrence: None)
  Receive Date: 20091028
  Receipt Date: 20091024
  Transmission Date: 20100525
  Serious: Yes (Hospitalization)
  Sender: FDA-Public Use
  Company Number: A0813637A

PATIENT
  Sex: Female
  Weight: 75 kg

DRUGS (1)
  1. SERETIDE [Suspect]
     Indication: ASTHMA
     Dosage: 1PUFF TWICE PER DAY
     Route: 055
     Dates: start: 20090801

REACTIONS (3)
  - ADVERSE EVENT [None]
  - OVERDOSE [None]
  - PULMONARY EMBOLISM [None]
